FAERS Safety Report 5051966-0 (Version None)
Quarter: 2006Q3

REPORT INFORMATION
  Report Type: 
  Country: None (occurrence: None)
  Receive Date: 20060711
  Receipt Date: 20060616
  Transmission Date: 20061208
  Serious: Yes (Hospitalization)
  Sender: FDA-Public Use
  Company Number: US200601005414

PATIENT
  Age: 53 Year
  Sex: Female
  Weight: 81.2 kg

DRUGS (2)
  1. ZYPREXA [Suspect]
     Dosage: ORAL; 2.7 MG, ORAL; 5 MG, ORAL; 10 MG, ORAL
     Route: 048
     Dates: start: 20030801, end: 20041201
  2. METOPROLOL                (METOPROLOL) [Concomitant]

REACTIONS (5)
  - CORONARY ARTERY DISEASE [None]
  - DIABETES MELLITUS [None]
  - HYPERTENSION [None]
  - MYOCARDIAL ISCHAEMIA [None]
  - OBESITY [None]
